FAERS Safety Report 7531506-4 (Version None)
Quarter: 2011Q2

REPORT INFORMATION
  Report Type: 
  Country: None (occurrence: None)
  Receive Date: 20110601
  Receipt Date: 20110516
  Transmission Date: 20111010
  Serious: Yes (Death, Hospitalization)
  Sender: FDA-Public Use
  Company Number: TRP_07748_2011

PATIENT
  Age: 47 Year
  Sex: Male

DRUGS (2)
  1. AMPHOTERICIN B [Suspect]
     Indication: CEREBRAL ASPERGILLOSIS
     Dosage: (0.8 TO 1 MG/KG PER DAY)
  2. SOLUMEDROL (SOLUMEDROL - METHYLPREDNISOLONE SODIUM SUCCINATE) (NOT SPE [Suspect]
     Indication: STAPHYLOCOCCAL INFECTION
     Dosage: (40 MG QD)

REACTIONS (8)
  - THROMBOCYTOPENIA [None]
  - HYDROCEPHALUS [None]
  - CEREBELLAR SYNDROME [None]
  - DIABETES MELLITUS [None]
  - RENAL FAILURE [None]
  - INTRACRANIAL PRESSURE INCREASED [None]
  - DIABETIC HYPEROSMOLAR COMA [None]
  - BRAIN OEDEMA [None]
